FAERS Safety Report 10610275 (Version 1)
Quarter: 2014Q4

REPORT INFORMATION
  Report Type: Spontaneous
  Country: FR (occurrence: FR)
  Receive Date: 20141126
  Receipt Date: 20141126
  Transmission Date: 20150529
  Serious: Yes (Hospitalization)
  Sender: FDA-Public Use
  Company Number: FR-JNJFOC-20141113249

PATIENT
  Age: 89 Year
  Sex: Female

DRUGS (8)
  1. NEBIVOLOL [Concomitant]
     Active Substance: NEBIVOLOL
     Route: 065
  2. NITRIDERM [Concomitant]
     Active Substance: NITROGLYCERIN
     Route: 065
  3. SALMETEROL XINAFOATE [Concomitant]
     Active Substance: SALMETEROL XINAFOATE
     Route: 065
  4. XARELTO [Suspect]
     Active Substance: RIVAROXABAN
     Indication: PRODUCT USED FOR UNKNOWN INDICATION
     Route: 048
     Dates: end: 20140730
  5. COVERSYL [Concomitant]
     Active Substance: PERINDOPRIL
     Route: 065
  6. BURINEX [Concomitant]
     Active Substance: BUMETANIDE
     Route: 065
  7. FACTOR VII [Concomitant]
     Route: 065
  8. FLUVASTATIN [Concomitant]
     Active Substance: FLUVASTATIN SODIUM
     Route: 065

REACTIONS (3)
  - Subdural haematoma [Recovered/Resolved]
  - Anaemia [Recovered/Resolved]
  - Wound [Recovered/Resolved]

NARRATIVE: CASE EVENT DATE: 20140730
